FAERS Safety Report 8990582 (Version 2)
Quarter: 2013Q1

REPORT INFORMATION
  Report Type: Spontaneous
  Country: IT (occurrence: IT)
  Receive Date: 20121228
  Receipt Date: 20130117
  Transmission Date: 20140127
  Serious: Yes (Hospitalization)
  Sender: FDA-Public Use
  Company Number: IT-BRISTOL-MYERS SQUIBB COMPANY-17225905

PATIENT
  Age: 68 Year
  Sex: Male

DRUGS (3)
  1. COUMADIN TABS 5 MG [Suspect]
     Indication: ATRIAL FIBRILLATION
     Dosage: 1 DOSAGE UNIT
     Route: 048
     Dates: start: 20050701, end: 20060115
  2. ATENOLOL [Concomitant]
     Route: 048
  3. PROCAPTAN [Concomitant]
     Dosage: TABS

REACTIONS (2)
  - Upper gastrointestinal haemorrhage [Recovered/Resolved]
  - Mallory-Weiss syndrome [Recovered/Resolved]
